FAERS Safety Report 8605155 (Version 2)
Quarter: 2012Q4

REPORT INFORMATION
  Report Type: 
  Country: US (occurrence: US)
  Receive Date: 20120608
  Receipt Date: 20121001
  Transmission Date: 20130627
  Serious: Yes (Hospitalization)
  Sender: FDA-Public Use
  Company Number: US-US-EMD SERONO, INC.-7137414

PATIENT
  Age: 70 None
  Sex: Male

DRUGS (1)
  1. REBIF [Suspect]
     Indication: PRODUCT USED FOR UNKNOWN INDICATION
     Route: 058
     Dates: start: 20111103, end: 201209

REACTIONS (2)
  - Bladder cancer [Not Recovered/Not Resolved]
  - Abasia [Not Recovered/Not Resolved]
